FAERS Safety Report 5050954-8 (Version None)
Quarter: 2006Q3

REPORT INFORMATION
  Report Type: 
  Country: None (occurrence: None)
  Receive Date: 20060710
  Receipt Date: 20060628
  Transmission Date: 20061208
  Serious: Yes (Life-Threatening, Hospitalization)
  Sender: FDA-Public Use
  Company Number: 225612

PATIENT
  Age: 81 Year
  Sex: Female
  Weight: 63 kg

DRUGS (12)
  1. AVASTIN [Suspect]
     Indication: COLON CANCER
     Dosage: SEE IMAGE
     Dates: start: 20060316, end: 20060427
  2. AVASTIN [Suspect]
     Indication: COLON CANCER
     Dosage: SEE IMAGE
     Dates: start: 20060216
  3. FLUOROURACIL [Concomitant]
  4. LEUCOVORIN CALCIUM [Concomitant]
  5. LANOXIN [Concomitant]
  6. ATENOLOL [Concomitant]
  7. KLONOPIN [Concomitant]
  8. LORTAB [Concomitant]
  9. PROTONIX [Concomitant]
  10. DECADRON [Concomitant]
  11. ANZEMET [Concomitant]
  12. B12 COMPLEX (CYANOCOBALAMIN, VITAMIN B COMPLEX) [Concomitant]

REACTIONS (10)
  - ATRIAL THROMBOSIS [None]
  - BLOOD PRESSURE INCREASED [None]
  - CONDITION AGGRAVATED [None]
  - DEHYDRATION [None]
  - DYSPNOEA [None]
  - GASTRITIS [None]
  - INTRACARDIAC THROMBUS [None]
  - RENAL ARTERY THROMBOSIS [None]
  - RENAL IMPAIRMENT [None]
  - VOMITING [None]
